FAERS Safety Report 15813467 (Version 1)
Quarter: 2019Q1

REPORT INFORMATION
  Report Type: Spontaneous
  Country: ES (occurrence: ES)
  Receive Date: 20190111
  Receipt Date: 20190111
  Transmission Date: 20190417
  Serious: Yes (Other)
  Sender: FDA-Public Use
  Company Number: ES-BAYER-2019-008714

PATIENT
  Age: 84 Year
  Sex: Male

DRUGS (5)
  1. PIRADOL [Concomitant]
  2. TROMALYT [Concomitant]
     Active Substance: ASPIRIN
     Dosage: UNK
     Route: 048
  3. XOFIGO [Suspect]
     Active Substance: RADIUM RA-223 DICHLORIDE
     Indication: METASTASES TO BONE
  4. MICARDIS [Concomitant]
     Active Substance: TELMISARTAN
  5. XOFIGO [Suspect]
     Active Substance: RADIUM RA-223 DICHLORIDE
     Indication: HORMONE-REFRACTORY PROSTATE CANCER
     Dosage: UNK
     Dates: start: 20151112

REACTIONS (6)
  - Weight decreased [None]
  - Hypophagia [None]
  - Decreased appetite [None]
  - Prostatic specific antigen increased [None]
  - Metastases to bone [None]
  - Haematochezia [None]
